FAERS Safety Report 9124267 (Version 1)
Quarter: 2013Q1

REPORT INFORMATION
  Report Type: Spontaneous
  Country: US (occurrence: US)
  Receive Date: 20130116
  Receipt Date: 20130116
  Transmission Date: 20140127
  Serious: No
  Sender: FDA-Public Use
  Company Number: US-PFIZER INC-2013016084

PATIENT
  Sex: Female

DRUGS (3)
  1. LYRICA [Suspect]
     Dosage: UNK
  2. HYDROXYZINE HYDROCHLORIDE [Suspect]
     Dosage: UNK
  3. TYLENOL [Suspect]
     Dosage: UNK

REACTIONS (4)
  - Spinal disorder [Unknown]
  - Intervertebral disc protrusion [Unknown]
  - Arthritis [Unknown]
  - Intervertebral disc space narrowing [Unknown]
